FAERS Safety Report 9398268 (Version 1)
Quarter: 2013Q3

REPORT INFORMATION
  Report Type: Spontaneous
  Country: GB (occurrence: GB)
  Receive Date: 20130712
  Receipt Date: 20130712
  Transmission Date: 20140515
  Serious: Yes (Disabling, Other)
  Sender: FDA-Public Use
  Company Number: GB-009507513-1307GBR003168

PATIENT
  Age: 27 Year
  Sex: Female
  Weight: 58.96 kg

DRUGS (1)
  1. IMPLANON [Suspect]
     Dosage: UNK
     Route: 058
     Dates: start: 20110928, end: 20120605

REACTIONS (18)
  - Aggression [Recovering/Resolving]
  - Loss of consciousness [Recovering/Resolving]
  - Confusional state [Recovering/Resolving]
  - Intentional self-injury [Recovering/Resolving]
  - Delusion [Recovering/Resolving]
  - Syncope [Recovering/Resolving]
  - Thinking abnormal [Recovering/Resolving]
  - Psychiatric symptom [Recovering/Resolving]
  - Paranoia [Recovering/Resolving]
  - Personality change [Recovering/Resolving]
  - Suicidal ideation [Recovering/Resolving]
  - Tearfulness [Recovering/Resolving]
  - Emotional distress [Recovering/Resolving]
  - Affect lability [Recovering/Resolving]
  - Fatigue [Recovering/Resolving]
  - Nausea [Recovering/Resolving]
  - Vomiting [Recovering/Resolving]
  - Weight increased [Recovering/Resolving]
